FAERS Safety Report 4946868-1 (Version None)
Quarter: 2006Q1

REPORT INFORMATION
  Report Type: 
  Country: None (occurrence: None)
  Receive Date: 20060317
  Receipt Date: 20050118
  Transmission Date: 20060701
  Serious: Yes (Hospitalization)
  Sender: FDA-Public Use
  Company Number: US-MERCK-0501USA02971

PATIENT
  Age: 53 Year
  Sex: Female
  Weight: 98 kg

DRUGS (15)
  1. VIOXX [Suspect]
     Indication: ARTHRITIS
     Route: 048
     Dates: start: 20010106, end: 20030101
  2. VIOXX [Suspect]
     Indication: ARTHRALGIA
     Route: 048
     Dates: start: 20010106, end: 20030101
  3. GLUCOPHAGE [Concomitant]
     Route: 065
  4. ALLEGRA [Concomitant]
     Route: 065
  5. CEFTIN [Concomitant]
     Route: 065
  6. FLONASE [Concomitant]
     Route: 065
  7. LEVAQUIN [Concomitant]
     Route: 065
  8. ADVIL [Concomitant]
     Route: 065
  9. ACTIVELLA [Concomitant]
     Route: 065
  10. MAXZIDE [Concomitant]
     Route: 065
  11. PREMPRO [Concomitant]
     Route: 065
  12. ASTELIN [Concomitant]
     Route: 065
  13. TOPROL-XL [Concomitant]
     Route: 065
  14. LISINOPRIL-BC [Concomitant]
     Route: 065
  15. POTASSIUM CHLORIDE [Concomitant]
     Route: 065

REACTIONS (7)
  - ANXIETY [None]
  - CARDIAC DISORDER [None]
  - CHEST PAIN [None]
  - DEPRESSION [None]
  - HERPES ZOSTER [None]
  - MYOCARDIAL INFARCTION [None]
  - REOCCLUSION [None]
